FAERS Safety Report 5063687-9 (Version None)
Quarter: 2006Q3

REPORT INFORMATION
  Report Type: 
  Country: None (occurrence: None)
  Receive Date: 20060724
  Receipt Date: 20060710
  Transmission Date: 20061208
  Serious: Yes (Disabling, Other)
  Sender: FDA-Public Use
  Company Number: 14414

PATIENT
  Age: 6 Month
  Sex: Female

DRUGS (1)
  1. FLUCONAZOLE [Suspect]
     Dates: start: 20041223

REACTIONS (5)
  - DRUG EXPOSURE VIA BREAST MILK [None]
  - FOOD INTOLERANCE [None]
  - INFECTION [None]
  - TRANSIENT HYPOGAMMAGLOBULINAEMIA OF INFANCY [None]
  - WEIGHT GAIN POOR [None]
